FAERS Safety Report 8861862 (Version 1)
Quarter: 2012Q4

REPORT INFORMATION
  Report Type: Spontaneous
  Country: US (occurrence: None)
  Receive Date: 20121025
  Receipt Date: 20121025
  Transmission Date: 20130627
  Serious: Yes (Life-Threatening)
  Sender: FDA-Public Use
  Company Number: None

PATIENT
  Age: 56 Year
  Sex: Female

DRUGS (1)
  1. ERTAPENEM [Suspect]
     Dosage: 1000 MG IV DAILY
     Route: 042
     Dates: start: 20120604, end: 20120614

REACTIONS (1)
  - Convulsion [None]
